FAERS Safety Report 5259840-1 (Version None)
Quarter: 2007Q1

REPORT INFORMATION
  Report Type: 
  Country: None (occurrence: None)
  Receive Date: 20070307
  Receipt Date: 20070227
  Transmission Date: 20070707
  Serious: Yes (Death)
  Sender: FDA-Public Use
  Company Number: 2007US000449

PATIENT
  Age: 59 Year
  Sex: Female

DRUGS (4)
  1. PROGRAF [Suspect]
     Indication: PROPHYLAXIS AGAINST TRANSPLANT REJECTION
     Dosage: 1.00 MG, UID/QD, ORAL
     Route: 048
     Dates: start: 20030710, end: 20050506
  2. PROGRAF [Suspect]
     Indication: PROPHYLAXIS AGAINST TRANSPLANT REJECTION
     Dosage: 1.00 MG, UID/QD, ORAL
     Route: 048
     Dates: start: 20030923, end: 20050506
  3. AZATHIOPRINE [Concomitant]
  4. STEROIDS [Concomitant]

REACTIONS (1)
  - DEATH [None]
